FAERS Safety Report 6592745-2 (Version None)
Quarter: 2010Q1

REPORT INFORMATION
  Report Type: 
  Country: None (occurrence: None)
  Receive Date: 20100212
  Receipt Date: 20100127
  Transmission Date: 20100710
  Serious: Yes (Disabling)
  Sender: FDA-Public Use
  Company Number: 2010-00133

PATIENT
  Sex: Male

DRUGS (5)
  1. RAMIPRIL [Suspect]
     Indication: HYPERTENSION
     Dosage: 10 MG (10 MG, 1 IN 1 D)
  2. SIMVASTATIN [Concomitant]
  3. ASPIRIN [Concomitant]
  4. NIFEDIPINE [Concomitant]
  5. IROULIN [Concomitant]

REACTIONS (6)
  - ABDOMINAL PAIN UPPER [None]
  - CHEST PAIN [None]
  - DECREASED APPETITE [None]
  - INSOMNIA [None]
  - MYOCARDITIS [None]
  - VIRAL INFECTION [None]
